FAERS Safety Report 10020959 (Version 1)
Quarter: 2014Q1

REPORT INFORMATION
  Report Type: Spontaneous
  Country: US (occurrence: None)
  Receive Date: 20140318
  Receipt Date: 20140318
  Transmission Date: 20141002
  Serious: No
  Sender: FDA-Public Use
  Company Number: None

PATIENT
  Sex: 0

DRUGS (1)
  1. AVAPRO [Suspect]
     Dosage: REDUCED TO 75 MG
     Dates: start: 2005

REACTIONS (4)
  - Dyspepsia [None]
  - Abdominal discomfort [None]
  - Myalgia [None]
  - Hypotension [None]
